FAERS Safety Report 25180910 (Version 2)
Quarter: 2025Q3

REPORT INFORMATION
  Report Type: Report from Study
  Country: CA (occurrence: CA)
  Receive Date: 20250409
  Receipt Date: 20250911
  Transmission Date: 20251021
  Serious: Yes (Other)
  Sender: ABBVIE
  Company Number: CA-ABBVIE-6211463

PATIENT
  Age: 44 Year
  Sex: Female

DRUGS (1)
  1. SKYRIZI [Suspect]
     Active Substance: RISANKIZUMAB-RZAA
     Indication: Crohn^s disease
     Dosage: LAST DOSE: 18 JUL 2025
     Route: 058

REACTIONS (7)
  - Retinal vein occlusion [Recovering/Resolving]
  - Vision blurred [Unknown]
  - Abdominal distension [Unknown]
  - Constipation [Unknown]
  - Gastrointestinal motility disorder [Recovering/Resolving]
  - Bowel movement irregularity [Recovering/Resolving]
  - Pelvic floor dysfunction [Unknown]

NARRATIVE: CASE EVENT DATE: 20250201
